FAERS Safety Report 17974915 (Version 2)
Quarter: 2020Q3

REPORT INFORMATION
  Report Type: Spontaneous
  Country: US (occurrence: US)
  Receive Date: 20200702
  Receipt Date: 20200714
  Transmission Date: 20201103
  Serious: Yes (Other)
  Sender: FDA-Public Use
  Company Number: US-PFIZER INC-2020250995

PATIENT
  Age: 50 Year
  Sex: Female
  Weight: 70.3 kg

DRUGS (7)
  1. MORPHINE SULFATE. [Suspect]
     Active Substance: MORPHINE SULFATE
     Indication: SPINAL ANAESTHESIA
     Dosage: 150 UG (SPINAL)
     Route: 037
  2. CEFAZOLIN [Concomitant]
     Active Substance: CEFAZOLIN
     Indication: ANTIBIOTIC PROPHYLAXIS
     Dosage: 02 G
     Route: 042
  3. PHENYLEPHRINE [Concomitant]
     Active Substance: PHENYLEPHRINE HYDROCHLORIDE
     Indication: BLOOD PRESSURE MANAGEMENT
     Dosage: 50 UG/ML
     Route: 042
  4. BUPIVACAINE. [Concomitant]
     Active Substance: BUPIVACAINE
     Indication: SPINAL ANAESTHESIA
     Dosage: 12 MG (HYPERBARIC BUPIVACAINE 0.75%)
     Route: 037
  5. FENTANYL. [Concomitant]
     Active Substance: FENTANYL
     Indication: SPINAL ANAESTHESIA
     Dosage: 15 UG
     Route: 037
  6. CLONIDINE. [Concomitant]
     Active Substance: CLONIDINE
     Indication: SPINAL ANAESTHESIA
     Dosage: 30 UG
     Route: 037
  7. OXYTOCIN. [Concomitant]
     Active Substance: OXYTOCIN
     Dosage: 15 IU (15 U/H)

REACTIONS (1)
  - Hypothermia [Recovered/Resolved]
